FAERS Safety Report 5609227-4 (Version None)
Quarter: 2008Q1

REPORT INFORMATION
  Report Type: 
  Country: None (occurrence: None)
  Receive Date: 20080129
  Receipt Date: 20080129
  Transmission Date: 20080703
  Serious: Yes (Other)
  Sender: FDA-Public Use
  Company Number: None

PATIENT
  Age: 81 Year
  Sex: Male
  Weight: 92.9874 kg

DRUGS (13)
  1. SIMVASTATIN [Suspect]
     Indication: BLOOD CHOLESTEROL INCREASED
     Dosage: 1/2 TABLET OR 40 PER DAY AT SUPPER
     Dates: start: 20041120, end: 20080125
  2. ATENOLOL [Concomitant]
  3. LISINOPRIL [Concomitant]
  4. FUROSEMIDE [Concomitant]
  5. KLOR-CON [Concomitant]
  6. ACIPHEX [Concomitant]
  7. GLIPIZIDE [Concomitant]
  8. ASACORT [Concomitant]
  9. ADVIAR [Concomitant]
  10. SENIOR VIT [Concomitant]
  11. SELENUM [Concomitant]
  12. VIT E 400 [Concomitant]
  13. VIT C 500 [Concomitant]

REACTIONS (2)
  - BACK PAIN [None]
  - CONDITION AGGRAVATED [None]
